FAERS Safety Report 13300115 (Version 2)
Quarter: 2017Q1

REPORT INFORMATION
  Report Type: Report from Study
  Country: AT (occurrence: AT)
  Receive Date: 20170306
  Receipt Date: 20170329
  Transmission Date: 20170428
  Serious: Yes (Other)
  Sender: FDA-Public Use
  Company Number: PHHY2015AT135249

PATIENT
  Age: 60 Year
  Sex: Female

DRUGS (1)
  1. TASIGNA [Suspect]
     Active Substance: NILOTINIB
     Indication: CHRONIC MYELOID LEUKAEMIA
     Dosage: UNK
     Route: 048

REACTIONS (6)
  - Haematochezia [Unknown]
  - Musculoskeletal pain [Unknown]
  - Dyspepsia [Unknown]
  - Gamma-glutamyltransferase increased [Unknown]
  - Gastric disorder [Unknown]
  - Headache [Unknown]

NARRATIVE: CASE EVENT DATE: 2014
